FAERS Safety Report 9937333 (Version 1)
Quarter: 2014Q1

REPORT INFORMATION
  Report Type: Spontaneous
  Country: US (occurrence: US)
  Receive Date: 20140302
  Receipt Date: 20140302
  Transmission Date: 20141002
  Serious: No
  Sender: FDA-Public Use
  Company Number: US-009507513-1402USA008294

PATIENT
  Age: 29 Year
  Sex: Female
  Weight: 94.33 kg

DRUGS (1)
  1. IMPLANON [Suspect]
     Indication: CONTRACEPTION
     Dosage: 68MG
     Route: 059
     Dates: start: 20120116, end: 20140213

REACTIONS (4)
  - Device breakage [Recovered/Resolved]
  - Implant site urticaria [Unknown]
  - Implant site pruritus [Unknown]
  - Implant site pain [Unknown]
